FAERS Safety Report 11693928 (Version 1)
Quarter: 2015Q4

REPORT INFORMATION
  Report Type: Spontaneous
  Country: US (occurrence: US)
  Receive Date: 20151103
  Receipt Date: 20151103
  Transmission Date: 20160304
  Serious: Yes (Hospitalization)
  Sender: FDA-Public Use
  Company Number: US-CTI_01814_2015

PATIENT
  Sex: Female

DRUGS (2)
  1. BETHKIS [Suspect]
     Active Substance: TOBRAMYCIN
     Indication: CYSTIC FIBROSIS
     Dosage: 300ML/4ML, BID
     Dates: start: 20150309
  2. TOBI [Concomitant]
     Active Substance: TOBRAMYCIN
     Dosage: DF

REACTIONS (3)
  - Feeding tube complication [Unknown]
  - Weight decreased [Unknown]
  - Device dislocation [None]

NARRATIVE: CASE EVENT DATE: 2015
